FAERS Safety Report 6984149 (Version 3)
Quarter: 2012Q4

REPORT INFORMATION
  Report Type: 
  Country: US (occurrence: US)
  Receive Date: 20090501
  Receipt Date: 20121211
  Transmission Date: 20130627
  Serious: Yes (Hospitalization, Other)
  Sender: FDA-Public Use
  Company Number: US-ALEXION-A200700043

PATIENT
  Age: 45 Year
  Sex: Female
  Weight: 93.88 kg

DRUGS (22)
  1. SOLIRIS [Suspect]
     Indication: PAROXYSMAL NOCTURNAL HAEMOGLOBINURIA
     Dosage: 600 mg, single
     Route: 042
     Dates: start: 20070524, end: 20070524
  2. SOLIRIS [Suspect]
     Dosage: 600 mg, single
     Route: 042
     Dates: start: 20070531, end: 20070531
  3. SOLIRIS [Suspect]
     Dosage: 600 mg, single
     Route: 042
     Dates: start: 20070607, end: 20070607
  4. SOLIRIS [Suspect]
     Dosage: 600 mg, single
     Route: 042
     Dates: start: 20070613, end: 20070613
  5. SOLIRIS [Suspect]
     Dosage: 900 mg, single
     Route: 042
     Dates: start: 20070620, end: 20070620
  6. SOLIRIS [Suspect]
     Dosage: 900 mg, single
     Route: 042
     Dates: start: 20070704, end: 20070704
  7. SOLIRIS [Suspect]
     Dosage: 900 mg, single
     Route: 042
     Dates: start: 20070718, end: 20070718
  8. SOLIRIS [Suspect]
     Dosage: 900 mg, single
     Route: 042
     Dates: start: 20070803, end: 20070803
  9. SOLIRIS [Suspect]
     Dosage: 900 mg, single
     Route: 042
     Dates: start: 20070815, end: 20070815
  10. SOLIRIS [Suspect]
     Dosage: 900 mg, single
     Route: 042
     Dates: start: 20070829, end: 20070829
  11. SOLIRIS [Suspect]
     Dosage: 900 mg, single
     Route: 042
     Dates: start: 20070912, end: 20070912
  12. SOLIRIS [Suspect]
     Dosage: 900 mg, single
     Route: 042
     Dates: start: 20080827, end: 20080827
  13. SOLIRIS [Suspect]
     Dosage: 900 mg, q2w
     Route: 042
  14. PROCRIT [Concomitant]
     Dosage: 60000 IU, qw
     Route: 058
  15. FOLIC ACID [Concomitant]
     Dosage: 2 mg, qd
     Route: 048
  16. BUMEX [Concomitant]
     Dosage: 2 mg, bid
     Route: 048
  17. POTASSIUM CHLORIDE [Concomitant]
     Dosage: 20 mEq, bid
     Route: 048
  18. CELEXA [Concomitant]
     Dosage: 10 mg, qd
     Route: 048
  19. WARFARIN [Concomitant]
     Dosage: 2.5 mg, qd, Mon-Fri
     Route: 048
  20. WARFARIN [Concomitant]
     Dosage: 5 mg, qd, Sat + Sun
     Route: 048
  21. METHADONE [Concomitant]
     Dosage: 10 mg, tid
     Route: 048
  22. FOSAMAX [Concomitant]
     Dosage: 70 mg, qw
     Route: 048

REACTIONS (5)
  - Meningitis meningococcal [Recovered/Resolved]
  - Influenza [Recovered/Resolved]
  - Cellulitis [Recovered/Resolved]
  - Cholelithiasis [Recovered/Resolved]
  - Sinusitis [Recovered/Resolved]
